FAERS Safety Report 6078640-6 (Version None)
Quarter: 2009Q1

REPORT INFORMATION
  Report Type: 
  Country: None (occurrence: None)
  Receive Date: 20090215
  Receipt Date: 20090203
  Transmission Date: 20090719
  Serious: Yes (Death, Other)
  Sender: FDA-Public Use
  Company Number: US-PFIZER INC-2008087370

PATIENT

DRUGS (2)
  1. CELEBREX [Suspect]
  2. ACETYLSALICYLIC ACID [Suspect]

REACTIONS (1)
  - HAEMORRHAGE [None]
